FAERS Safety Report 23439834 (Version 2)
Quarter: 2024Q1

REPORT INFORMATION
  Report Type: Spontaneous
  Country: US (occurrence: US)
  Receive Date: 20240124
  Receipt Date: 20240201
  Transmission Date: 20240409
  Serious: Yes (Other)
  Sender: FDA-Public Use
  Company Number: US-ELI_LILLY_AND_COMPANY-US202401013763

PATIENT
  Age: 38 Year
  Weight: 70 kg

DRUGS (9)
  1. ZYPREXA RELPREVV [Suspect]
     Active Substance: OLANZAPINE PAMOATE
     Indication: Schizophrenia
     Dosage: 210 MG, UNKNOWN, GLUTEAL MUSCLE
     Route: 030
     Dates: start: 20231204
  2. ZYPREXA RELPREVV [Suspect]
     Active Substance: OLANZAPINE PAMOATE
     Indication: Schizophrenia
     Dosage: 210 MG, UNKNOWN, GLUTEAL MUSCLE
     Route: 030
     Dates: start: 20231204
  3. ZYPREXA RELPREVV [Suspect]
     Active Substance: OLANZAPINE PAMOATE
     Indication: Schizophrenia
     Dosage: 210 MG, UNKNOWN, GLUTEAL MUSCLE
     Route: 030
     Dates: start: 20231204
  4. ZYPREXA RELPREVV [Suspect]
     Active Substance: OLANZAPINE PAMOATE
     Dosage: 210 MG, UNKNOWN, GLUTEAL MUSCLE
     Route: 030
     Dates: start: 20231229
  5. ZYPREXA RELPREVV [Suspect]
     Active Substance: OLANZAPINE PAMOATE
     Dosage: 210 MG, UNKNOWN, GLUTEAL MUSCLE
     Route: 030
     Dates: start: 20231229
  6. ZYPREXA RELPREVV [Suspect]
     Active Substance: OLANZAPINE PAMOATE
     Dosage: 210 MG, UNKNOWN, GLUTEAL MUSCLE
     Route: 030
     Dates: start: 20231229
  7. ZYPREXA RELPREVV [Suspect]
     Active Substance: OLANZAPINE PAMOATE
     Dosage: 210 MG, UNKNOWN, GLUTEAL MUSCLE
     Route: 030
     Dates: start: 20240112
  8. ZYPREXA RELPREVV [Suspect]
     Active Substance: OLANZAPINE PAMOATE
     Dosage: 210 MG, UNKNOWN, GLUTEAL MUSCLE
     Route: 030
     Dates: start: 20240112
  9. ZYPREXA RELPREVV [Suspect]
     Active Substance: OLANZAPINE PAMOATE
     Dosage: 210 MG, UNKNOWN, GLUTEAL MUSCLE
     Route: 030
     Dates: start: 20240112

REACTIONS (5)
  - Post-injection delirium sedation syndrome [Recovered/Resolved]
  - Ataxia [Recovered/Resolved]
  - Disorientation [Recovered/Resolved]
  - Sedation [Recovered/Resolved]
  - Asthenia [Recovered/Resolved]

NARRATIVE: CASE EVENT DATE: 20240112
